FAERS Safety Report 21043315 (Version 2)
Quarter: 2023Q2

REPORT INFORMATION
  Report Type: Other
  Country: US (occurrence: None)
  Receive Date: 20220705
  Receipt Date: 20230417
  Transmission Date: 20230721
  Serious: Yes (Other)
  Sender: FDA-Public Use
  Company Number: US-ROCHE-3127290

PATIENT
  Age: 65 Year
  Sex: Female
  Weight: 68.100 kg

DRUGS (19)
  1. OCREVUS [Suspect]
     Active Substance: OCRELIZUMAB
     Indication: Primary progressive multiple sclerosis
     Dosage: DOT: 16-MAY-2022
     Route: 042
     Dates: start: 20211101
  2. DUPIXENT [Concomitant]
     Active Substance: DUPILUMAB
  3. ZINC [Concomitant]
     Active Substance: ZINC
  4. AFRIN [Concomitant]
     Active Substance: OXYMETAZOLINE
  5. VOLTAREN [Concomitant]
     Active Substance: DICLOFENAC SODIUM
  6. MIRABEGRON [Concomitant]
     Active Substance: MIRABEGRON
  7. CLOBETASOL [Concomitant]
     Active Substance: CLOBETASOL
  8. OMEGA 3 [Concomitant]
     Active Substance: CAPSAICIN
  9. HERBALS\TURMERIC [Concomitant]
     Active Substance: HERBALS\TURMERIC
  10. MAGNESIUM [Concomitant]
     Active Substance: MAGNESIUM
  11. BIOTIN [Concomitant]
     Active Substance: BIOTIN
  12. SELENIUM [Concomitant]
     Active Substance: SELENIUM
  13. ASPIRIN [Concomitant]
     Active Substance: ASPIRIN
  14. ALEVE [Concomitant]
     Active Substance: NAPROXEN SODIUM
  15. CLARITIN-D 12 HOUR [Concomitant]
     Active Substance: LORATADINE\PSEUDOEPHEDRINE SULFATE
  16. DALFAMPRIDINE [Concomitant]
     Active Substance: DALFAMPRIDINE
  17. KLONOPIN [Concomitant]
     Active Substance: CLONAZEPAM
  18. CRESTOR [Concomitant]
     Active Substance: ROSUVASTATIN CALCIUM
  19. LOSARTAN [Concomitant]
     Active Substance: LOSARTAN

REACTIONS (8)
  - Fall [Unknown]
  - Contusion [Recovered/Resolved]
  - Urinary tract infection [Recovering/Resolving]
  - Eczema [Recovering/Resolving]
  - Swelling [Recovering/Resolving]
  - Peroneal nerve palsy [Unknown]
  - Injury [Unknown]
  - Injury [Unknown]

NARRATIVE: CASE EVENT DATE: 20211115
